FAERS Safety Report 4399509-9 (Version None)
Quarter: 2004Q3

REPORT INFORMATION
  Report Type: 
  Country: None (occurrence: None)
  Receive Date: 20040716
  Receipt Date: 20011108
  Transmission Date: 20050211
  Serious: Yes (Other)
  Sender: FDA-Public Use
  Company Number: US-GLAXOSMITHKLINE-A0355300A

PATIENT
  Sex: Female

DRUGS (4)
  1. PAXIL [Suspect]
     Dates: start: 20000401, end: 20001201
  2. PAXIL [Suspect]
     Dates: start: 20010617, end: 20010930
  3. PAXIL [Suspect]
     Dates: start: 20010901, end: 20011001
  4. PAXIL [Suspect]
     Dates: start: 20011019

REACTIONS (15)
  - AGGRESSION [None]
  - CRYING [None]
  - DISTURBANCE IN ATTENTION [None]
  - DRUG WITHDRAWAL SYNDROME [None]
  - HEADACHE [None]
  - HYPOACTIVE SEXUAL DESIRE DISORDER [None]
  - INFLUENZA LIKE ILLNESS [None]
  - INSOMNIA [None]
  - IRRITABILITY [None]
  - NEGATIVE THOUGHTS [None]
  - PAIN [None]
  - PERSONALITY CHANGE [None]
  - SUICIDAL IDEATION [None]
  - THINKING ABNORMAL [None]
  - WEIGHT INCREASED [None]
